FAERS Safety Report 9652858 (Version 2)
Quarter: 2013Q4

REPORT INFORMATION
  Report Type: Spontaneous
  Country: US (occurrence: US)
  Receive Date: 20131029
  Receipt Date: 20131212
  Transmission Date: 20140711
  Serious: Yes (Death)
  Sender: FDA-Public Use
  Company Number: US-PFIZER INC-2013306991

PATIENT
  Age: 36 Year
  Sex: Male

DRUGS (1)
  1. SUTENT [Suspect]
     Indication: MALIGNANT NEOPLASM OF CORNEA
     Dosage: 12.5 MG, UNK
     Dates: start: 20120123

REACTIONS (2)
  - Post procedural complication [Fatal]
  - Off label use [Unknown]
